FAERS Safety Report 13847336 (Version 1)
Quarter: 2017Q3

REPORT INFORMATION
  Report Type: Spontaneous
  Country: US (occurrence: US)
  Receive Date: 20170808
  Receipt Date: 20170808
  Transmission Date: 20171127
  Serious: Yes (Other)
  Sender: FDA-Public Use
  Company Number: US-NAPPMUNDI-USA-2017-0140129

PATIENT
  Sex: Female
  Weight: 52.16 kg

DRUGS (1)
  1. OXYCODONE HYDROCHLORIDE (SIMILAR TO NDA 22-272) [Suspect]
     Active Substance: OXYCODONE HYDROCHLORIDE
     Indication: PAIN
     Dosage: 20 MG, Q4H
     Route: 048
     Dates: start: 2014

REACTIONS (10)
  - Memory impairment [Unknown]
  - Asthenia [Unknown]
  - Malaise [Unknown]
  - Cystitis [Unknown]
  - Drug tolerance [Unknown]
  - Bladder injury [Unknown]
  - Inadequate analgesia [Unknown]
  - Headache [Unknown]
  - Neuropathy peripheral [Unknown]
  - Speech disorder [Unknown]

NARRATIVE: CASE EVENT DATE: 2014
